FAERS Safety Report 18746275 (Version 4)
Quarter: 2021Q1

REPORT INFORMATION
  Report Type: Report from Study
  Country: US (occurrence: US)
  Receive Date: 20210115
  Receipt Date: 20210208
  Transmission Date: 20210419
  Serious: No
  Sender: FDA-Public Use
  Company Number: NVSC2021US008655

PATIENT
  Sex: Female

DRUGS (3)
  1. PROLIA [Concomitant]
     Active Substance: DENOSUMAB
     Indication: PRODUCT USED FOR UNKNOWN INDICATION
     Dosage: UNK
     Route: 065
  2. PROMACTA [Suspect]
     Active Substance: ELTROMBOPAG OLAMINE
     Indication: IMMUNE THROMBOCYTOPENIA
     Dosage: 50 MG, QD (EVERY NIGHT)
     Route: 048
  3. PROMACTA [Suspect]
     Active Substance: ELTROMBOPAG OLAMINE
     Dosage: 50 MG, QD
     Route: 065

REACTIONS (20)
  - Hypertension [Unknown]
  - Ocular hyperaemia [Unknown]
  - Chest pain [Unknown]
  - Platelet count increased [Unknown]
  - Dizziness [Unknown]
  - Headache [Unknown]
  - Chills [Unknown]
  - Throat irritation [Unknown]
  - Rash [Recovering/Resolving]
  - Dyspnoea [Unknown]
  - Arthralgia [Unknown]
  - Rash macular [Unknown]
  - Joint swelling [Unknown]
  - Fatigue [Unknown]
  - Myalgia [Unknown]
  - Back pain [Unknown]
  - Neck pain [Unknown]
  - Dry mouth [Unknown]
  - Abdominal distension [Recovering/Resolving]
  - Liver function test increased [Unknown]
